FAERS Safety Report 5148761-0 (Version None)
Quarter: 2006Q4

REPORT INFORMATION
  Report Type: 
  Country: None (occurrence: None)
  Receive Date: 20061107
  Receipt Date: 20061023
  Transmission Date: 20070319
  Serious: Yes (Hospitalization)
  Sender: FDA-Public Use
  Company Number: 203797

PATIENT
  Age: 61 Year
  Sex: Male
  Weight: 76.4 kg

DRUGS (7)
  1. BEVACIZUMAB [Suspect]
     Indication: DIFFUSE LARGE B-CELL LYMPHOMA
     Dosage: 15 MG/KG, Q3W, INTRAVENOUS
     Route: 042
     Dates: start: 20031118
  2. RITUXAN [Suspect]
     Indication: DIFFUSE LARGE B-CELL LYMPHOMA
     Dosage: 375 MG/M2, UNK, UNK
     Dates: start: 20031118
  3. CYTOXAN [Suspect]
     Indication: DIFFUSE LARGE B-CELL LYMPHOMA
     Dosage: 750 MG/M2, UNK, INTRAVENOUS
     Route: 042
     Dates: start: 20031119
  4. ADRIAMYCIN PFS [Suspect]
     Indication: DIFFUSE LARGE B-CELL LYMPHOMA
     Dosage: 50 MG/M2, UNK, INTRAVENOUS
     Route: 042
     Dates: start: 20031119
  5. VINCRISTINE [Suspect]
     Indication: DIFFUSE LARGE B-CELL LYMPHOMA
     Dosage: 1.4 MG/M2, UNK, INTRAVENOUS
     Route: 042
     Dates: start: 20031119
  6. DECADRON [Suspect]
     Indication: DIFFUSE LARGE B-CELL LYMPHOMA
     Dosage: 15 MG, UNK, INTRAVENOUS
     Route: 042
     Dates: start: 20031119
  7. METHOTREXATE [Suspect]
     Indication: DIFFUSE LARGE B-CELL LYMPHOMA
     Dosage: 12 MG, UNK, INTRATHECAL
     Route: 037
     Dates: start: 20031117

REACTIONS (3)
  - ASCITES [None]
  - EROSIVE OESOPHAGITIS [None]
  - PLEURAL EFFUSION [None]
